FAERS Safety Report 5899292-1 (Version None)
Quarter: 2008Q3

REPORT INFORMATION
  Report Type: 
  Country: None (occurrence: None)
  Receive Date: 20080925
  Receipt Date: 20080919
  Transmission Date: 20090109
  Serious: Yes (Hospitalization)
  Sender: FDA-Public Use
  Company Number: DE-MERCK-0809DEU00097

PATIENT

DRUGS (1)
  1. VYTORIN [Suspect]
     Route: 048
     Dates: end: 20080819

REACTIONS (4)
  - GENERAL PHYSICAL HEALTH DETERIORATION [None]
  - HEPATIC ENZYME ABNORMAL [None]
  - SKIN DISORDER [None]
  - VOMITING [None]
